FAERS Safety Report 5604211-9 (Version None)
Quarter: 2008Q1

REPORT INFORMATION
  Report Type: 
  Country: None (occurrence: None)
  Receive Date: 20080128
  Receipt Date: 20080115
  Transmission Date: 20080703
  Serious: Yes (Hospitalization, Other)
  Sender: FDA-Public Use
  Company Number: US-AMGEN-STX260828

PATIENT
  Sex: Female

DRUGS (1)
  1. ENBREL [Suspect]
     Indication: RHEUMATOID ARTHRITIS
     Route: 058
     Dates: start: 20001201

REACTIONS (10)
  - ARTHRALGIA [None]
  - BONE PAIN [None]
  - CYSTITIS [None]
  - HIP FRACTURE [None]
  - INJURY [None]
  - NEOPLASM [None]
  - NEPHROLITHIASIS [None]
  - OSTEOPOROSIS [None]
  - RESIDUAL URINE [None]
  - SPINAL FRACTURE [None]
